FAERS Safety Report 6455617-X (Version None)
Quarter: 2009Q4

REPORT INFORMATION
  Report Type: 
  Country: None (occurrence: None)
  Receive Date: 20091125
  Receipt Date: 20090820
  Transmission Date: 20100525
  Serious: No
  Sender: FDA-Public Use
  Company Number: US-ABBOTT-09P-163-0593736-00

PATIENT
  Sex: Female
  Weight: 81.72 kg

DRUGS (1)
  1. SIMCOR [Suspect]
     Indication: BLOOD CHOLESTEROL INCREASED
     Dates: start: 20090726

REACTIONS (3)
  - GENERALISED OEDEMA [None]
  - PRURITUS GENERALISED [None]
  - SKIN BURNING SENSATION [None]
